FAERS Safety Report 24603705 (Version 4)
Quarter: 2025Q1

REPORT INFORMATION
  Report Type: Spontaneous
  Country: GB (occurrence: GB)
  Receive Date: 20241111
  Receipt Date: 20250129
  Transmission Date: 20250409
  Serious: Yes (Hospitalization, Other)
  Sender: MYLAN
  Company Number: GB-MYLANLABS-2024M1100133

PATIENT
  Sex: Male

DRUGS (3)
  1. CLOZARIL [Suspect]
     Active Substance: CLOZAPINE
     Indication: Schizophrenia
     Route: 048
     Dates: start: 20080902, end: 20241101
  2. CLOZARIL [Suspect]
     Active Substance: CLOZAPINE
     Dosage: AM (STAT DOSE IN THE MORNING)
     Route: 048
     Dates: start: 20241226
  3. CLOZARIL [Suspect]
     Active Substance: CLOZAPINE
     Dosage: 350 MILLIGRAM, PM (NIGHT)
     Route: 048
     Dates: start: 20241226

REACTIONS (5)
  - Hospitalisation [Recovered/Resolved]
  - Mental impairment [Unknown]
  - Overdose [Unknown]
  - Psychotic disorder [Unknown]
  - Therapy cessation [Unknown]

NARRATIVE: CASE EVENT DATE: 20241101
